FAERS Safety Report 24078926 (Version 9)
Quarter: 2025Q1

REPORT INFORMATION
  Report Type: Spontaneous
  Country: CA (occurrence: CA)
  Receive Date: 20240711
  Receipt Date: 20250115
  Transmission Date: 20250408
  Serious: Yes (Other)
  Sender: PFIZER
  Company Number: CA-PFIZER INC-202400063995

PATIENT
  Age: 31 Year
  Sex: Male

DRUGS (5)
  1. ABRILADA [Suspect]
     Active Substance: ADALIMUMAB-AFZB
     Indication: Hidradenitis
     Route: 058
     Dates: start: 20231117
  2. ABRILADA [Suspect]
     Active Substance: ADALIMUMAB-AFZB
     Route: 058
     Dates: start: 202403
  3. ABRILADA [Suspect]
     Active Substance: ADALIMUMAB-AFZB
     Dosage: 80 MG, WEEKLY
     Route: 058
     Dates: start: 2024
  4. ABRILADA [Suspect]
     Active Substance: ADALIMUMAB-AFZB
     Dosage: 80 MG, WEEKLY
     Route: 058
  5. ABRILADA [Suspect]
     Active Substance: ADALIMUMAB-AFZB
     Dosage: 80 MG, WEEKLY (DISCONTINUED-UNKNOWN DATE )
     Route: 058
     Dates: start: 2024

REACTIONS (9)
  - Groin abscess [Not Recovered/Not Resolved]
  - Anal abscess [Recovering/Resolving]
  - Abscess limb [Recovered/Resolved]
  - Subcutaneous abscess [Recovered/Resolved]
  - Skin lesion [Unknown]
  - Pain [Unknown]
  - Anorectal disorder [Unknown]
  - Condition aggravated [Not Recovered/Not Resolved]
  - Off label use [Unknown]

NARRATIVE: CASE EVENT DATE: 20240101
